FAERS Safety Report 23171173 (Version 1)
Quarter: 2023Q4

REPORT INFORMATION
  Report Type: Report from Study
  Country: US (occurrence: US)
  Receive Date: 20231110
  Receipt Date: 20231110
  Transmission Date: 20240110
  Serious: Yes (Other)
  Sender: FDA-Public Use
  Company Number: US-ABBVIE-5486843

PATIENT
  Sex: Female

DRUGS (1)
  1. HUMIRA [Suspect]
     Active Substance: ADALIMUMAB
     Indication: Product used for unknown indication
     Route: 058
     Dates: start: 20230730

REACTIONS (4)
  - Papilloedema [Unknown]
  - Retinal white dots syndrome [Unknown]
  - Inflammation [Unknown]
  - Ocular vascular disorder [Unknown]

NARRATIVE: CASE EVENT DATE: 20230101
